FAERS Safety Report 8308003-1 (Version None)
Quarter: 2012Q2

REPORT INFORMATION
  Report Type: 
  Country: None (occurrence: None)
  Receive Date: 20120424
  Receipt Date: 20120419
  Transmission Date: 20120825
  Serious: Yes (Hospitalization)
  Sender: FDA-Public Use
  Company Number: SE-GLAXOSMITHKLINE-B0797129A

PATIENT
  Sex: Male

DRUGS (19)
  1. NATRIUMBIKARBONAT [Concomitant]
  2. FUROSEMIDE [Concomitant]
  3. ACETAMINOPHEN W/ CODEINE [Concomitant]
  4. METOPROLOL TARTRATE [Concomitant]
  5. FELODIPINE [Concomitant]
  6. ETALPHA [Concomitant]
  7. MAGNESIUM [Concomitant]
  8. FOSRENOL [Concomitant]
  9. IMDUR [Concomitant]
  10. SPIRONOLACTONE [Concomitant]
  11. VALTREX [Suspect]
     Indication: PRODUCT USED FOR UNKNOWN INDICATION
     Route: 065
     Dates: start: 20120301, end: 20120301
  12. OMEPRAZOLE [Concomitant]
  13. PHYSIOTENS [Concomitant]
  14. FOLIC ACID [Concomitant]
  15. TRAMADOL HCL [Concomitant]
  16. LONITEN [Concomitant]
  17. SODIUM POLYSTYRENE SULFONATE [Concomitant]
  18. ORALOVITE [Concomitant]
  19. ASPIRIN [Concomitant]

REACTIONS (5)
  - FEELING ABNORMAL [None]
  - HALLUCINATION, VISUAL [None]
  - SPEECH DISORDER [None]
  - HALLUCINATION [None]
  - DYSARTHRIA [None]
